FAERS Safety Report 16208043 (Version 2)
Quarter: 2019Q2

REPORT INFORMATION
  Report Type: Spontaneous
  Country: US (occurrence: US)
  Receive Date: 20190417
  Receipt Date: 20190502
  Transmission Date: 20190711
  Serious: No
  Sender: FDA-Public Use
  Company Number: US-ALEXION PHARMACEUTICALS INC.-A201905661

PATIENT
  Age: 24 Year
  Sex: Female
  Weight: 94.79 kg

DRUGS (5)
  1. CELLCEPT [Concomitant]
     Active Substance: MYCOPHENOLATE MOFETIL\MYCOPHENOLATE MOFETIL HYDROCHLORIDE
     Indication: PRODUCT USED FOR UNKNOWN INDICATION
     Dosage: 750 MG, BID
     Route: 065
  2. PENICILLIN                         /00000901/ [Concomitant]
     Active Substance: PENICILLIN G
     Indication: PROPHYLAXIS
     Dosage: UNK
     Route: 065
  3. PROGRAF [Concomitant]
     Active Substance: TACROLIMUS\TACROLIMUS ANHYDROUS
     Indication: PRODUCT USED FOR UNKNOWN INDICATION
     Dosage: 2 MG, BID
     Route: 065
  4. SOLIRIS [Suspect]
     Active Substance: ECULIZUMAB
     Indication: ATYPICAL HAEMOLYTIC URAEMIC SYNDROME
     Dosage: UNK
     Route: 065
     Dates: start: 201611
  5. SOLIRIS [Suspect]
     Active Substance: ECULIZUMAB
     Dosage: 1200 MG, Q2W
     Route: 042
     Dates: start: 2016

REACTIONS (24)
  - Somnolence [Recovered/Resolved]
  - Blood lactate dehydrogenase increased [Unknown]
  - Mean cell haemoglobin concentration decreased [Unknown]
  - Lymphocyte count decreased [Unknown]
  - Hypertension [Unknown]
  - Dyspnoea [Recovered/Resolved]
  - Blood glucose increased [Unknown]
  - Protein urine present [Unknown]
  - Glomerular filtration rate decreased [Unknown]
  - Clostridium test positive [Unknown]
  - Urinary sediment present [Unknown]
  - Cough [Recovered/Resolved]
  - Urine leukocyte esterase positive [Unknown]
  - Chest pain [Recovered/Resolved]
  - Urine analysis abnormal [Unknown]
  - Carbon dioxide decreased [Unknown]
  - Blood calcium increased [Unknown]
  - Red blood cell count increased [Unknown]
  - Neutrophil count increased [Unknown]
  - Infusion related reaction [Recovered/Resolved]
  - Device issue [Unknown]
  - Blood albumin increased [Unknown]
  - Blood alkaline phosphatase increased [Unknown]
  - Chest discomfort [Recovered/Resolved]

NARRATIVE: CASE EVENT DATE: 20180613
